FAERS Safety Report 8418064-7 (Version None)
Quarter: 2012Q2

REPORT INFORMATION
  Report Type: 
  Country: None (occurrence: None)
  Receive Date: 20120531
  Receipt Date: 20120516
  Transmission Date: 20120825
  Serious: Yes (Life-Threatening)
  Sender: FDA-Public Use
  Company Number: 20120317

PATIENT
  Age: 83 Year
  Sex: Female
  Weight: 75.2971 kg

DRUGS (11)
  1. SODIUM CHLORIDE 0.9% [Suspect]
     Indication: ANAEMIA
     Dosage: 250 ML (ONE DOSE)
     Dates: start: 20120420, end: 20120420
  2. FISH OIL [Concomitant]
  3. OMEPRAZOLE [Concomitant]
  4. OSTEOBIFLEX [Concomitant]
  5. TEGRETOL [Concomitant]
  6. CLONIDINE [Concomitant]
  7. ASPIRIN [Concomitant]
  8. BENICAR [Concomitant]
  9. VENOFER (IRON SUCROSE INJECTION, USP) (2340-10) 20 MG/ML [Suspect]
     Indication: ANAEMIA
     Dosage: 500 MG (25 ML) 1 DOSE
     Dates: start: 20120420, end: 20120420
  10. MAGOXIDE [Concomitant]
  11. PREMARIN [Concomitant]

REACTIONS (18)
  - UNRESPONSIVE TO STIMULI [None]
  - PARAESTHESIA [None]
  - OXYGEN SATURATION DECREASED [None]
  - DIZZINESS [None]
  - BLOOD GLUCOSE INCREASED [None]
  - SINUS TACHYCARDIA [None]
  - FEELING ABNORMAL [None]
  - FATIGUE [None]
  - CARDIAC ARREST [None]
  - BACK PAIN [None]
  - BLOOD PRESSURE SYSTOLIC INCREASED [None]
  - PROTEIN TOTAL DECREASED [None]
  - OEDEMA PERIPHERAL [None]
  - BLOOD ALBUMIN DECREASED [None]
  - RESPIRATORY DISORDER [None]
  - SINUS BRADYCARDIA [None]
  - SOMNOLENCE [None]
  - BLOOD ALKALINE PHOSPHATASE INCREASED [None]
